FAERS Safety Report 4705931-0 (Version None)
Quarter: 2005Q2

REPORT INFORMATION
  Report Type: 
  Country: None (occurrence: None)
  Receive Date: 20050628
  Receipt Date: 20050407
  Transmission Date: 20051028
  Serious: Yes (Other)
  Sender: FDA-Public Use
  Company Number: OSCN-PR-0504S-0100

PATIENT
  Age: 62 Year
  Sex: Female
  Weight: 68.0396 kg

DRUGS (23)
  1. OMNISCAN [Suspect]
     Indication: INFECTION
     Dosage: 200 ML, SINGLE DOS, I.V.
     Route: 042
     Dates: start: 20050405, end: 20050405
  2. OMNISCAN [Suspect]
     Indication: POOR PERIPHERAL CIRCULATION
     Dosage: 200 ML, SINGLE DOS, I.V.
     Route: 042
     Dates: start: 20050405, end: 20050405
  3. VISIPAQUE [Suspect]
     Indication: INFECTION
     Dosage: 30 ML, SINGLE DOSE, I.V.
     Route: 042
     Dates: start: 20050405, end: 20050405
  4. VISIPAQUE [Suspect]
     Indication: POOR PERIPHERAL CIRCULATION
     Dosage: 30 ML, SINGLE DOSE, I.V.
     Route: 042
     Dates: start: 20050405, end: 20050405
  5. LIPITOR [Concomitant]
  6. CLONAZEPAM (CLONOPIN) [Concomitant]
  7. DIGOXIN [Concomitant]
  8. IRON [Concomitant]
  9. FUROSEMIDE [Concomitant]
  10. GUANFACINE HCL [Concomitant]
  11. INSULIN [Concomitant]
  12. IMDUR [Concomitant]
  13. MAGNESIUM OXIDE [Concomitant]
  14. PANTOPRAZOLE (PROTONIX) [Concomitant]
  15. PAXIL [Concomitant]
  16. PROPRANOLOL [Concomitant]
  17. TRAMADOL [Concomitant]
  18. WARFARIN [Concomitant]
  19. ZETIA [Concomitant]
  20. MIDAZOLAM HYDROCHLORIDE [Concomitant]
  21. ACETYLCYSTEINE [Concomitant]
  22. SODIUM CHLORIDE (NORMAL SALINE) [Concomitant]
  23. STERILE WATER WITH SODIUM BICARBONATE [Concomitant]

REACTIONS (1)
  - RENAL FAILURE [None]
